FAERS Safety Report 7331617-2 (Version None)
Quarter: 2011Q1

REPORT INFORMATION
  Report Type: 
  Country: None (occurrence: None)
  Receive Date: 20110224
  Receipt Date: 20110218
  Transmission Date: 20110831
  Serious: Yes (Death)
  Sender: FDA-Public Use
  Company Number: 2011SP008214

PATIENT
  Age: 81 Year
  Sex: Female

DRUGS (7)
  1. LOXOPROFEN SODIUM HYDRATE [Concomitant]
  2. LANSOPRAZOLE [Concomitant]
  3. ZOLPIDEM TARTRATE [Concomitant]
  4. MIRTAZAPINE [Suspect]
     Indication: DECREASED APPETITE
     Dosage: 15 MG; QD; PO
     Route: 048
     Dates: start: 20110117, end: 20110205
  5. MIRTAZAPINE [Suspect]
     Indication: PAIN
     Dosage: 15 MG; QD; PO
     Route: 048
     Dates: start: 20110117, end: 20110205
  6. MIRTAZAPINE [Suspect]
     Indication: DEPRESSION
     Dosage: 15 MG; QD; PO
     Route: 048
     Dates: start: 20110117, end: 20110205
  7. MIRTAZAPINE [Suspect]
     Indication: INSOMNIA
     Dosage: 15 MG; QD; PO
     Route: 048
     Dates: start: 20110117, end: 20110205

REACTIONS (3)
  - SOMNOLENCE [None]
  - DEPRESSED LEVEL OF CONSCIOUSNESS [None]
  - GENERAL PHYSICAL HEALTH DETERIORATION [None]
